FAERS Safety Report 9303446 (Version 1)
Quarter: 2013Q2

REPORT INFORMATION
  Report Type: Spontaneous
  Country: US (occurrence: US)
  Receive Date: 20130522
  Receipt Date: 20130522
  Transmission Date: 20140414
  Serious: Yes (Hospitalization)
  Sender: FDA-Public Use
  Company Number: US-BAYER-2013-060854

PATIENT
  Age: 38 Year
  Sex: Female
  Weight: 52 kg

DRUGS (12)
  1. YAZ [Suspect]
     Dosage: UNK
  2. GIANVI [Suspect]
     Dosage: UNK
  3. TERRAMYCIN POLYMYXIN [Concomitant]
     Dosage: UNK
     Route: 061
     Dates: start: 20120104
  4. PREDNISONE [Concomitant]
     Dosage: 10 MG, UNK
     Route: 048
     Dates: start: 20120116, end: 20120309
  5. HYDRA-ZIDE [HYDRALAZINE HYDROCHLORIDE,HYDROCHLOROTHIAZIDE] [Concomitant]
     Indication: URTICARIA
     Dosage: 25 MG, UNK
     Route: 048
     Dates: start: 20120118, end: 20120302
  6. ARMOUR THYROID [Concomitant]
     Dosage: 90 MG, UNK
     Route: 048
     Dates: start: 20120119
  7. VALACICLOVIR [Concomitant]
     Dosage: 1 MG, UNK
     Route: 048
     Dates: start: 20120222
  8. CIMETIDINE [Concomitant]
     Dosage: 800 MG, UNK
     Route: 048
     Dates: start: 20120309
  9. PENICILLIN VK [Concomitant]
     Dosage: 500 MG, UNK
     Route: 048
     Dates: start: 20120316
  10. ZYRTEC [Concomitant]
     Dosage: UNK
     Route: 048
     Dates: start: 20120321
  11. CALCIUM [Concomitant]
     Dosage: UNK
     Route: 048
     Dates: start: 20130321
  12. VITAMIN D [Concomitant]
     Dosage: UNK
     Route: 048
     Dates: start: 20120321

REACTIONS (2)
  - Deep vein thrombosis [None]
  - Pulmonary embolism [None]
